FAERS Safety Report 4947714-2 (Version None)
Quarter: 2006Q1

REPORT INFORMATION
  Report Type: 
  Country: None (occurrence: None)
  Receive Date: 20060314
  Receipt Date: 20060301
  Transmission Date: 20060701
  Serious: Yes (Other)
  Sender: FDA-Public Use
  Company Number: 2006030443

PATIENT
  Age: 71 Year
  Sex: Male
  Weight: 82.5547 kg

DRUGS (3)
  1. LIPITOR [Suspect]
     Indication: BLOOD CHOLESTEROL INCREASED
     Dosage: 20 MG (20 MG, 1 IN 1 D),
     Dates: start: 19980101
  2. NIACIN [Concomitant]
  3. ASPIRIN [Concomitant]

REACTIONS (1)
  - BLADDER CANCER [None]
